FAERS Safety Report 8987919 (Version 1)
Quarter: 2012Q4

REPORT INFORMATION
  Report Type: 
  Country: DE (occurrence: DE)
  Receive Date: 20121227
  Receipt Date: 20121227
  Transmission Date: 20130627
  Serious: Yes (Death, Life-Threatening, Hospitalization, Congenital Anomaly)
  Sender: FDA-Public Use
  Company Number: DE-NICOBRDEVP-2012-22531

PATIENT
  Sex: Male
  Weight: 4 kg

DRUGS (2)
  1. FLUOXETINE HYDROCHLORIDE (UNKNOWN) [Suspect]
     Indication: DEPRESSION
     Dosage: 40 mg/d/after gestational week 29: 20mg/d
     Route: 064
     Dates: start: 20111008, end: 20120627
  2. FEMIBION [Concomitant]
     Indication: VITAMIN SUPPLEMENTATION
     Dosage: 0.8 mg, daily
     Route: 064

REACTIONS (1)
  - Double outlet right ventricle [Fatal]
